FAERS Safety Report 19949840 (Version 1)
Quarter: 2021Q4

REPORT INFORMATION
  Report Type: Spontaneous
  Country: US (occurrence: US)
  Receive Date: 20211012
  Receipt Date: 20211012
  Transmission Date: 20220303
  Serious: Yes (Death)
  Sender: FDA-Public Use
  Company Number: None

PATIENT
  Age: 62 Year
  Sex: Male
  Weight: 117 kg

DRUGS (4)
  1. BARICITINIB [Suspect]
     Active Substance: BARICITINIB
  2. LOVENOX [Concomitant]
     Active Substance: ENOXAPARIN SODIUM
     Dates: start: 20210926, end: 20211009
  3. FAMOTIDINE [Concomitant]
     Active Substance: FAMOTIDINE
     Dates: end: 20211009
  4. DEXAMETHASONE [Concomitant]
     Active Substance: DEXAMETHASONE
     Dates: start: 20210926, end: 20211008

REACTIONS (6)
  - Haemoglobin decreased [None]
  - Haematocrit decreased [None]
  - Catheter site haemorrhage [None]
  - Hypotension [None]
  - Pulseless electrical activity [None]
  - Cardiac arrest [None]

NARRATIVE: CASE EVENT DATE: 20211009
